FAERS Safety Report 9873254 (Version 1)
Quarter: 2014Q1

REPORT INFORMATION
  Report Type: Other
  Country: US (occurrence: US)
  Receive Date: 20140206
  Receipt Date: 20140206
  Transmission Date: 20141002
  Serious: Yes (Hospitalization)
  Sender: FDA-Public Use
  Company Number: US-ACORDA-ACO_101355_2014

PATIENT
  Sex: Female
  Weight: 85.71 kg

DRUGS (1)
  1. AMPYRA [Suspect]
     Indication: MULTIPLE SCLEROSIS
     Dosage: 10 MG, BID
     Route: 048
     Dates: start: 20130509, end: 201401

REACTIONS (2)
  - Upper respiratory tract infection [Recovering/Resolving]
  - Multiple sclerosis [Recovering/Resolving]
